FAERS Safety Report 8962450 (Version 1)
Quarter: 2012Q4

REPORT INFORMATION
  Report Type: Spontaneous
  Country: US (occurrence: None)
  Receive Date: 20121211
  Receipt Date: 20121211
  Transmission Date: 20130627
  Serious: Yes (Hospitalization)
  Sender: FDA-Public Use
  Company Number: None

PATIENT
  Sex: Female
  Weight: 76 kg

DRUGS (2)
  1. DOXORUBICIN HYDROCHLORIDE [Suspect]
     Dates: end: 20051114
  2. CYCLOPHOSPHAMIDE [Suspect]
     Dates: end: 20051114

REACTIONS (5)
  - Dyspnoea [None]
  - Palpitations [None]
  - Acute myeloid leukaemia [None]
  - Stem cell transplant [None]
  - Second primary malignancy [None]
